FAERS Safety Report 17646392 (Version 1)
Quarter: 2020Q2

REPORT INFORMATION
  Report Type: Spontaneous
  Country: US (occurrence: US)
  Receive Date: 20200408
  Receipt Date: 20200408
  Transmission Date: 20200713
  Serious: Yes (Other)
  Sender: FDA-Public Use
  Company Number: US-NOVOPROD-721662

PATIENT
  Sex: Female

DRUGS (2)
  1. TRESIBA [Suspect]
     Active Substance: INSULIN DEGLUDEC
     Indication: TYPE 2 DIABETES MELLITUS
     Dosage: 65 IU, QD
     Route: 058
  2. TRESIBA [Suspect]
     Active Substance: INSULIN DEGLUDEC
     Dosage: 50 IU, QD (LOWERED TO 50)
     Route: 058

REACTIONS (2)
  - Macular oedema [Not Recovered/Not Resolved]
  - Treatment noncompliance [Unknown]

NARRATIVE: CASE EVENT DATE: 201904
